FAERS Safety Report 9881658 (Version 1)
Quarter: 2014Q1

REPORT INFORMATION
  Report Type: Spontaneous
  Country: US (occurrence: None)
  Receive Date: 20140205
  Receipt Date: 20140205
  Transmission Date: 20141002
  Serious: Yes (Hospitalization, Other)
  Sender: FDA-Public Use
  Company Number: 7265908

PATIENT
  Age: 79 Year
  Sex: Male

DRUGS (5)
  1. LEVOTHYROXINE (LEVOTHYROXINE) [Suspect]
     Indication: PRODUCT USED FOR UNKNOWN INDICATION
  2. AMLODIPINE (AMLODIPINE) [Suspect]
     Indication: PRODUCT USED FOR UNKNOWN INDICATION
  3. ASPIRIN [Suspect]
     Indication: PRODUCT USED FOR UNKNOWN INDICATION
  4. LOVASTATIN (LOVASTATIN) [Suspect]
     Indication: PRODUCT USED FOR UNKNOWN INDICATION
  5. NADOLOL (NADOLOL) [Suspect]
     Indication: PRODUCT USED FOR UNKNOWN INDICATION

REACTIONS (11)
  - Hyperkalaemia [None]
  - Asthenia [None]
  - Malaise [None]
  - Decreased appetite [None]
  - Weight decreased [None]
  - Paralysis [None]
  - Fall [None]
  - Renal failure [None]
  - Electrocardiogram QRS complex prolonged [None]
  - Hyperphosphataemia [None]
  - Hyperuricaemia [None]
